FAERS Safety Report 8831133 (Version 2)
Quarter: 2012Q4

REPORT INFORMATION
  Report Type: 
  Country: DE (occurrence: DE)
  Receive Date: 20121009
  Receipt Date: 20121126
  Transmission Date: 20130627
  Serious: Yes (Hospitalization, Other)
  Sender: FDA-Public Use
  Company Number: PHHY2012DE085877

PATIENT
  Age: 76 Year
  Sex: Male
  Weight: 90 kg

DRUGS (6)
  1. SANDIMMUN OPTORAL [Suspect]
     Indication: NEURODERMATITIS
     Dosage: 250 mg, per day
     Route: 048
     Dates: start: 20111012, end: 201203
  2. SANDIMMUN OPTORAL [Interacting]
     Dosage: 100 mg, per day
     Route: 048
     Dates: start: 201203
  3. SANDIMMUN OPTORAL [Interacting]
     Dosage: 150 mg, per day
     Route: 048
     Dates: start: 201209, end: 201210
  4. SANDIMMUN OPTORAL [Interacting]
     Dosage: 300 mg, per day
     Route: 048
     Dates: start: 201210
  5. XUSAL [Interacting]
     Indication: HOUSE DUST ALLERGY
     Dosage: 5 mg, TID
  6. ECURAL [Concomitant]
     Indication: NEURODERMATITIS
     Route: 061

REACTIONS (11)
  - Erythema [Recovering/Resolving]
  - Pruritus [Not Recovered/Not Resolved]
  - Skin lesion [Recovering/Resolving]
  - Feeling cold [Recovered/Resolved]
  - Drug level increased [Recovered/Resolved]
  - White blood cell count decreased [Recovered/Resolved]
  - Drug interaction [Recovered/Resolved]
  - Skin disorder [Recovering/Resolving]
  - Rash [Recovering/Resolving]
  - Skin mass [Recovering/Resolving]
  - Blood uric acid increased [Unknown]
